FAERS Safety Report 8177999-3 (Version None)
Quarter: 2012Q1

REPORT INFORMATION
  Report Type: 
  Country: None (occurrence: None)
  Receive Date: 20120301
  Receipt Date: 20120223
  Transmission Date: 20120608
  Serious: Yes (Death, Other)
  Sender: FDA-Public Use
  Company Number: US-CELGENEUS-163-21880-11011769

PATIENT
  Sex: Female

DRUGS (10)
  1. LENALIDOMIDE [Suspect]
     Indication: MULTIPLE MYELOMA
     Route: 048
     Dates: start: 20070409, end: 20080129
  2. CYCLOPHOSPHAMIDE [Suspect]
     Indication: MULTIPLE MYELOMA
     Route: 065
  3. ETOPOSIDE [Suspect]
     Indication: MULTIPLE MYELOMA
     Route: 065
  4. BORTEZOMIB [Suspect]
     Indication: MULTIPLE MYELOMA
     Route: 065
  5. ALKERAN [Suspect]
     Indication: MULTIPLE MYELOMA
     Route: 065
  6. DOXORUBICIN HCL [Suspect]
     Indication: MULTIPLE MYELOMA
     Route: 065
  7. VINCRISTINE [Suspect]
     Indication: MULTIPLE MYELOMA
     Route: 065
  8. CISPLATIN [Suspect]
     Indication: MULTIPLE MYELOMA
     Route: 065
  9. THALOMID [Suspect]
     Indication: MULTIPLE MYELOMA
     Route: 048
  10. DEXAMETHASONE [Suspect]
     Indication: MULTIPLE MYELOMA
     Route: 065

REACTIONS (2)
  - MULTIPLE MYELOMA [None]
  - MYELODYSPLASTIC SYNDROME [None]
